FAERS Safety Report 22656022 (Version 8)
Quarter: 2024Q1

REPORT INFORMATION
  Report Type: Spontaneous
  Country: US (occurrence: US)
  Receive Date: 20230629
  Receipt Date: 20240108
  Transmission Date: 20240410
  Serious: No
  Sender: FDA-Public Use
  Company Number: US-PFIZER INC-202200822678

PATIENT
  Age: 80 Year
  Sex: Female
  Weight: 165 kg

DRUGS (3)
  1. PREMARIN [Suspect]
     Active Substance: ESTROGENS, CONJUGATED
     Indication: Night sweats
     Dosage: 3 MG, 1X/DAY
  2. PREMARIN [Suspect]
     Active Substance: ESTROGENS, CONJUGATED
     Indication: Nervousness
  3. PREMARIN [Suspect]
     Active Substance: ESTROGENS, CONJUGATED
     Indication: Hot flush

REACTIONS (5)
  - Gait disturbance [Unknown]
  - Body height decreased [Unknown]
  - Malaise [Unknown]
  - Irritability [Unknown]
  - Eructation [Unknown]
